FAERS Safety Report 18985883 (Version 1)
Quarter: 2021Q1

REPORT INFORMATION
  Report Type: Spontaneous
  Country: US (occurrence: US)
  Receive Date: 20210308
  Receipt Date: 20210308
  Transmission Date: 20210420
  Serious: Yes (Other)
  Sender: FDA-Public Use
  Company Number: None

PATIENT
  Age: 59 Year
  Sex: Female
  Weight: 57.6 kg

DRUGS (4)
  1. TRAZODONE 100 MG Q HS [Concomitant]
     Dates: start: 20060101, end: 20200101
  2. BACTRIM [Suspect]
     Active Substance: SULFAMETHOXAZOLE\TRIMETHOPRIM
  3. ESCITALOPRAM [Suspect]
     Active Substance: ESCITALOPRAM OXALATE
     Indication: ANXIETY
     Route: 049
  4. BUSPIRONE [Suspect]
     Active Substance: BUSPIRONE HYDROCHLORIDE
     Indication: ANXIETY
     Route: 049

REACTIONS (9)
  - Toxicity to various agents [None]
  - Urinary tract infection [None]
  - Anxiety [None]
  - Drug interaction [None]
  - Loss of personal independence in daily activities [None]
  - Suicidal ideation [None]
  - Middle insomnia [None]
  - Serotonin syndrome [None]
  - Depression [None]

NARRATIVE: CASE EVENT DATE: 20191225
